FAERS Safety Report 4641923-8 (Version None)
Quarter: 2005Q2

REPORT INFORMATION
  Report Type: 
  Country: None (occurrence: None)
  Receive Date: 20050421
  Receipt Date: 20050407
  Transmission Date: 20051028
  Serious: No
  Sender: FDA-Public Use
  Company Number: 2005057571

PATIENT
  Sex: Female
  Weight: 86.1834 kg

DRUGS (5)
  1. DAYPRO CAPLET (OXAPROZIN) [Suspect]
     Indication: ARTHRITIS
  2. IBUPROFEN [Concomitant]
     Indication: ARTHRITIS
  3. AMLODIPINE BESYLATE [Concomitant]
  4. BISOPROLOL FUMARATE AND HYDROCHLOROTHIAZIDE [Concomitant]
  5. LISINOPRIL [Concomitant]

REACTIONS (2)
  - BREAST CANCER [None]
  - FEELING ABNORMAL [None]
